FAERS Safety Report 8072003-X (Version None)
Quarter: 2011Q4

REPORT INFORMATION
  Report Type: 
  Country: None (occurrence: None)
  Receive Date: 20111221
  Receipt Date: 20110914
  Transmission Date: 20120403
  Serious: Yes (Hospitalization)
  Sender: FDA-Public Use
  Company Number: PHHY2011US64092

PATIENT
  Age: 13 Year
  Sex: Male
  Weight: 41.6 kg

DRUGS (7)
  1. IBUPROFEN [Concomitant]
  2. MIRALAX [Concomitant]
  3. OXYCODONE HCL [Concomitant]
  4. OXYCONTIN [Concomitant]
  5. EXJADE [Suspect]
     Indication: IRON OVERLOAD
     Dosage: 1500 MG, QD, ORAL
     Route: 048
     Dates: start: 20070101, end: 20110703
  6. VYVANSE (LISDEXAMFETAMIN DIMESYLATE) [Concomitant]
  7. COLACE (DOCUSATE SODIUM) [Concomitant]

REACTIONS (10)
  - CONSTIPATION [None]
  - SICKLE CELL ANAEMIA WITH CRISIS [None]
  - LIVER FUNCTION TEST ABNORMAL [None]
  - BLOOD BILIRUBIN INCREASED [None]
  - PAIN IN EXTREMITY [None]
  - NAUSEA [None]
  - HEADACHE [None]
  - ABDOMINAL PAIN [None]
  - HAEMOGLOBIN DECREASED [None]
  - ALANINE AMINOTRANSFERASE INCREASED [None]
